FAERS Safety Report 4374335-5 (Version None)
Quarter: 2004Q2

REPORT INFORMATION
  Report Type: 
  Country: None (occurrence: None)
  Receive Date: 20040609
  Receipt Date: 20040527
  Transmission Date: 20050107
  Serious: Yes (Hospitalization)
  Sender: FDA-Public Use
  Company Number: PHBS2004GR07087

PATIENT
  Age: 70 Year
  Sex: Male

DRUGS (5)
  1. EXELON [Suspect]
     Dosage: 6 MG, BID
     Route: 048
  2. EXELON [Suspect]
     Dosage: 6 MG/D
     Route: 048
  3. EBIXA [Concomitant]
     Route: 065
  4. TRILEPTAL [Concomitant]
     Route: 048
  5. DEPAKENE [Concomitant]
     Dosage: 300 MG, TID
     Route: 065

REACTIONS (8)
  - HAEMATOCRIT DECREASED [None]
  - HAEMATURIA [None]
  - HAEMOGLOBIN DECREASED [None]
  - PROTHROMBIN TIME PROLONGED [None]
  - RED BLOOD CELL COUNT DECREASED [None]
  - RENAL COLIC [None]
  - TONGUE BITING [None]
  - TONGUE HAEMORRHAGE [None]
